FAERS Safety Report 9435002 (Version 1)
Quarter: 2013Q3

REPORT INFORMATION
  Report Type: Report from Study
  Country: US (occurrence: US)
  Receive Date: 20130801
  Receipt Date: 20130801
  Transmission Date: 20140515
  Serious: No
  Sender: FDA-Public Use
  Company Number: PHEH2013US016107

PATIENT
  Sex: Male

DRUGS (9)
  1. TASIGNA [Suspect]
     Indication: CHRONIC MYELOID LEUKAEMIA
     Dosage: 300 MG, BID
     Route: 048
     Dates: start: 201304
  2. SYNTHROID [Concomitant]
     Dosage: 175 UG, UNK
     Route: 048
  3. FLOMAX [Concomitant]
     Dosage: 0.4 MG, UNK
     Route: 048
  4. XANAX [Concomitant]
     Dosage: 0.25 MG, UNK
     Route: 048
  5. TRAMADOL//TRAMADOL HYDROCHLORIDE [Concomitant]
     Dosage: 50 MG, UNK
     Route: 048
  6. ATENOLOL [Concomitant]
     Dosage: 25 MG, UNK
     Route: 048
  7. GABAPENTIN [Concomitant]
     Dosage: 100 MG, UNK
     Route: 048
  8. VYVANSE [Concomitant]
     Dosage: 70 MG, UNK
  9. VESICARE [Concomitant]

REACTIONS (1)
  - Arthralgia [Unknown]
